FAERS Safety Report 7141528-3 (Version None)
Quarter: 2010Q4

REPORT INFORMATION
  Report Type: 
  Country: None (occurrence: None)
  Receive Date: 20101207
  Receipt Date: 20101129
  Transmission Date: 20110411
  Serious: Yes (Other)
  Sender: FDA-Public Use
  Company Number: CN-ASTRAZENECA-2010SE56357

PATIENT
  Age: 55 Year
  Sex: Male

DRUGS (2)
  1. IRESSA [Suspect]
     Indication: NON-SMALL CELL LUNG CANCER
     Route: 048
     Dates: start: 20100101
  2. IRESSA [Suspect]
     Dosage: ONE DAY USED FOUR TABLETS, I.E. 1000 MG
     Route: 048

REACTIONS (2)
  - OVERDOSE [None]
  - SOMNOLENCE [None]
